FAERS Safety Report 6208654-4 (Version None)
Quarter: 2009Q2

REPORT INFORMATION
  Report Type: 
  Country: None (occurrence: None)
  Receive Date: 20090522
  Receipt Date: 20090310
  Transmission Date: 20091009
  Serious: No
  Sender: FDA-Public Use
  Company Number: 8043848

PATIENT
  Age: 64 Year
  Sex: Female
  Weight: 65.9 kg

DRUGS (8)
  1. CIMZIA [Suspect]
     Indication: CROHN'S DISEASE
     Dosage: 400 MG SC
     Route: 058
     Dates: start: 20090307
  2. LIPITOR [Concomitant]
  3. SINGULAIR [Concomitant]
  4. ASPIRIN [Concomitant]
  5. VITAMIN D [Concomitant]
  6. GARLIC [Concomitant]
  7. FISH OIL [Concomitant]
  8. CALTRATE [Concomitant]

REACTIONS (3)
  - ALCOHOL POISONING [None]
  - LOSS OF CONSCIOUSNESS [None]
  - VOMITING [None]
